FAERS Safety Report 11331196 (Version 1)
Quarter: 2015Q3

REPORT INFORMATION
  Report Type: Spontaneous
  Country: US (occurrence: None)
  Receive Date: 20150730
  Receipt Date: 20150730
  Transmission Date: 20151125
  Serious: No
  Sender: FDA-Public Use
  Company Number: None

PATIENT
  Age: 92 Year
  Sex: Female
  Weight: 63.5 kg

DRUGS (17)
  1. ZETIA [Concomitant]
     Active Substance: EZETIMIBE
  2. LEVEMIR [Concomitant]
     Active Substance: INSULIN DETEMIR
  3. AMLODIPINE [Concomitant]
     Active Substance: AMLODIPINE BESYLATE
  4. INSULIN [Concomitant]
     Active Substance: INSULIN NOS
  5. BABY ASPIRIN [Concomitant]
     Active Substance: ASPIRIN
  6. WELCHOL [Suspect]
     Active Substance: COLESEVELAM HYDROCHLORIDE
     Indication: DIABETES MELLITUS
  7. LISINOPRIL. [Concomitant]
     Active Substance: LISINOPRIL
  8. VITAMIN B12 [Concomitant]
     Active Substance: CYANOCOBALAMIN
  9. ALPHAGAN P [Concomitant]
     Active Substance: BRIMONIDINE TARTRATE
  10. PACEMAKER [Concomitant]
  11. CRANBERRY. [Concomitant]
     Active Substance: CRANBERRY
  12. COQ10 [Concomitant]
     Active Substance: UBIDECARENONE
  13. TIMOLOL. [Concomitant]
     Active Substance: TIMOLOL
  14. OCUVITE [Concomitant]
     Active Substance: VITAMINS
  15. VITAMIN D [Concomitant]
     Active Substance: CHOLECALCIFEROL
  16. MAGNESIUM [Concomitant]
     Active Substance: MAGNESIUM
  17. WELCHOL [Suspect]
     Active Substance: COLESEVELAM HYDROCHLORIDE
     Indication: BLOOD CHOLESTEROL

REACTIONS (4)
  - Infrequent bowel movements [None]
  - Abdominal distension [None]
  - Faecaloma [None]
  - Nausea [None]

NARRATIVE: CASE EVENT DATE: 201506
